FAERS Safety Report 5567826-2 (Version None)
Quarter: 2007Q4

REPORT INFORMATION
  Report Type: 
  Country: None (occurrence: None)
  Receive Date: 20071220
  Receipt Date: 20071212
  Transmission Date: 20080405
  Serious: Yes (Other)
  Sender: FDA-Public Use
  Company Number: PHBS2006CH17392

PATIENT
  Age: 52 Year
  Sex: Female

DRUGS (4)
  1. TRILEPTAL [Suspect]
     Indication: TRIGEMINAL NEURALGIA
     Dosage: 1200 MG/DAY
     Dates: start: 20051001
  2. HEALING EARTH [Suspect]
     Dosage: 1 DF, QD
     Route: 048
     Dates: start: 20060201, end: 20060215
  3. PONSTAN [Concomitant]
     Indication: TRIGEMINAL NEURALGIA
  4. VALORON [Concomitant]
     Indication: TRIGEMINAL NEURALGIA

REACTIONS (3)
  - DRUG INEFFECTIVE [None]
  - DRUG INTERACTION [None]
  - TRIGEMINAL NEURALGIA [None]
